FAERS Safety Report 22523180 (Version 1)
Quarter: 2023Q2

REPORT INFORMATION
  Report Type: Spontaneous
  Country: AR (occurrence: AR)
  Receive Date: 20230606
  Receipt Date: 20230606
  Transmission Date: 20230722
  Serious: Yes (Other)
  Sender: FDA-Public Use
  Company Number: AR-002147023-NVSC2023AR127301

PATIENT
  Age: 33 Year
  Sex: Male

DRUGS (8)
  1. TEGRETOL [Suspect]
     Active Substance: CARBAMAZEPINE
     Indication: Epilepsy
     Dosage: UNK (400, 1 TABLET IN THE MORNING AND ONE AND A HALF IN THE AFTERNOON)
     Route: 048
  2. TEGRETOL [Suspect]
     Active Substance: CARBAMAZEPINE
     Indication: Seizure
     Dosage: UNK (200)
     Route: 048
  3. TEGRETOL [Suspect]
     Active Substance: CARBAMAZEPINE
     Dosage: 200 MG, Q8H
     Route: 065
  4. CARBAMAZEPINE [Concomitant]
     Active Substance: CARBAMAZEPINE
     Indication: Product used for unknown indication
     Dosage: 0.5 DOSAGE FORM, EVERY 8 HOURS (HALF A TABLET AT 8 IN THE MORNING AND ANOTHER ONE AT 16 HOURS AND TH
     Route: 065
  5. LUMINALETAS [Concomitant]
     Indication: Product used for unknown indication
     Dosage: UNK
     Route: 065
  6. LEVETIRACETAM [Concomitant]
     Active Substance: LEVETIRACETAM
     Indication: Product used for unknown indication
     Dosage: 5 MG, 8 IN THE MORNING AND AT 20 HRS
     Route: 065
  7. PHENOBARBITAL [Concomitant]
     Active Substance: PHENOBARBITAL
     Indication: Product used for unknown indication
     Dosage: UNK, 1 OF 0.1 GRAMS (AT 22 HOURS)
     Route: 065
  8. PHENOBARBITAL [Concomitant]
     Active Substance: PHENOBARBITAL
     Dosage: UNK, 1 AND A HALF OF 0.1 GRAMS
     Route: 065

REACTIONS (10)
  - Paralysis [Unknown]
  - Aphasia [Unknown]
  - Blindness [Unknown]
  - Gait disturbance [Unknown]
  - Gallbladder rupture [Unknown]
  - Hypersensitivity [Unknown]
  - Ill-defined disorder [Unknown]
  - Acne [Unknown]
  - Weight decreased [Unknown]
  - Wrong technique in product usage process [Unknown]
